FAERS Safety Report 17207614 (Version 3)
Quarter: 2021Q2

REPORT INFORMATION
  Report Type: Spontaneous
  Country: US (occurrence: US)
  Receive Date: 20191227
  Receipt Date: 20210409
  Transmission Date: 20210716
  Serious: Yes (Other)
  Sender: FDA-Public Use
  Company Number: US-PFIZER INC-2019555628

PATIENT
  Age: 62 Year

DRUGS (1)
  1. NICOTROL [Suspect]
     Active Substance: NICOTINE
     Indication: SMOKING CESSATION THERAPY
     Dosage: 1 PUFF IF NEEDED
     Route: 055

REACTIONS (5)
  - Lung neoplasm malignant [Unknown]
  - Bipolar disorder [Unknown]
  - Depression [Unknown]
  - Mental disorder [Unknown]
  - Drug ineffective [Unknown]
